FAERS Safety Report 6004627-5 (Version None)
Quarter: 2008Q4

REPORT INFORMATION
  Report Type: 
  Country: None (occurrence: None)
  Receive Date: 20081216
  Receipt Date: 20081016
  Transmission Date: 20090506
  Serious: Yes (Other)
  Sender: FDA-Public Use
  Company Number: US-BRISTOL-MYERS SQUIBB COMPANY-14371884

PATIENT
  Age: 43 Year
  Sex: Male

DRUGS (1)
  1. PRAVASTATIN SODIUM [Suspect]
     Indication: BLOOD CHOLESTEROL INCREASED
     Dosage: PRAVASTATIN 40MG:1TAB,PO,QD.
     Route: 048
     Dates: start: 20080925

REACTIONS (2)
  - BLADDER PAIN [None]
  - MICTURITION DISORDER [None]
